FAERS Safety Report 10619778 (Version 2)
Quarter: 2014Q4

REPORT INFORMATION
  Report Type: Spontaneous
  Country: US (occurrence: US)
  Receive Date: 20141202
  Receipt Date: 20141202
  Transmission Date: 20150529
  Serious: No
  Sender: FDA-Public Use
  Company Number: US-PFIZER INC-2014204155

PATIENT
  Age: 6 Decade
  Sex: Male
  Weight: 79 kg

DRUGS (2)
  1. GABAPENTIN. [Suspect]
     Active Substance: GABAPENTIN
     Indication: TRIGEMINAL NEURALGIA
     Dosage: UNK
  2. GABAPENTIN. [Suspect]
     Active Substance: GABAPENTIN
     Indication: TRIGEMINAL NEURALGIA
     Dosage: 300 MG, 3X/DAY
     Dates: start: 2014

REACTIONS (4)
  - Dysgeusia [Unknown]
  - Confusional state [Unknown]
  - Tinnitus [Unknown]
  - Herpes zoster [Unknown]

NARRATIVE: CASE EVENT DATE: 201409
